FAERS Safety Report 7542383-X (Version None)
Quarter: 2011Q2

REPORT INFORMATION
  Report Type: 
  Country: None (occurrence: None)
  Receive Date: 20110613
  Receipt Date: 20100507
  Transmission Date: 20111010
  Serious: No
  Sender: FDA-Public Use
  Company Number: US-TEVA-234482USA

PATIENT
  Sex: Female
  Weight: 48.578 kg

DRUGS (3)
  1. AZILECT [Suspect]
     Indication: PARKINSON'S DISEASE
     Dosage: .5 MILLIGRAM;
     Route: 048
     Dates: start: 20100401
  2. CYANOCOBALAMIN [Concomitant]
  3. UBIDECARENONE [Concomitant]

REACTIONS (2)
  - ABDOMINAL DISCOMFORT [None]
  - PAIN IN EXTREMITY [None]
